FAERS Safety Report 4974438-8 (Version None)
Quarter: 2006Q2

REPORT INFORMATION
  Report Type: 
  Country: None (occurrence: None)
  Receive Date: 20060417
  Receipt Date: 20040601
  Transmission Date: 20061013
  Serious: Yes (Other)
  Sender: FDA-Public Use
  Company Number: DE-BRISTOL-MYERS SQUIBB COMPANY-13343355

PATIENT
  Age: 19 Year
  Sex: Male
  Weight: 31 kg

DRUGS (15)
  1. SUSTIVA [Suspect]
     Indication: HIV INFECTION
     Dates: start: 20001001
  2. ZERIT [Suspect]
     Indication: HIV INFECTION
     Dates: start: 19970101
  3. VIDEX [Suspect]
     Indication: HIV INFECTION
     Dates: start: 20001001
  4. ATAZANAVIR [Suspect]
     Indication: HIV INFECTION
     Dates: start: 20040401
  5. ZIDOVUDINE [Suspect]
     Indication: HIV INFECTION
     Dates: start: 19950901
  6. ZALCITABINE [Suspect]
     Indication: HIV INFECTION
     Dates: start: 19950901
  7. LAMIVUDINE [Suspect]
     Indication: HIV INFECTION
     Dates: start: 19970101
  8. INDINIVIR SULFATE [Suspect]
     Indication: HIV INFECTION
     Dates: start: 19970101
  9. NELFINAVIR [Suspect]
     Indication: HIV INFECTION
     Dates: start: 19970901
  10. ABACAVIR [Suspect]
     Indication: HIV INFECTION
     Dates: start: 20010801
  11. TENOFOVIR [Suspect]
     Indication: HIV INFECTION
     Dates: start: 20020401
  12. AMPRENAVIR [Suspect]
     Indication: HIV INFECTION
     Dates: start: 20020401
  13. RITONAVIR [Suspect]
     Indication: HIV INFECTION
     Dates: start: 20020401
  14. KALETRA [Suspect]
     Indication: HIV INFECTION
     Dosage: LOPINAVIR 2X400 MG PER DAY AND RITONAVIR 100 MG PER DAY;APR-2004 2X100 MG PER DAY.
     Dates: start: 20040201
  15. COTRIM [Concomitant]
     Indication: PROPHYLAXIS
     Dates: start: 20040201

REACTIONS (7)
  - ABDOMINAL DISCOMFORT [None]
  - ABDOMINAL PAIN [None]
  - BURNS THIRD DEGREE [None]
  - DIARRHOEA [None]
  - DRUG RESISTANCE [None]
  - LIPASE INCREASED [None]
  - NEPHRITIS [None]
